FAERS Safety Report 9427271 (Version 1)
Quarter: 2013Q3

REPORT INFORMATION
  Report Type: Spontaneous
  Country: US (occurrence: None)
  Receive Date: 20130729
  Receipt Date: 20130729
  Transmission Date: 20140515
  Serious: Yes (Other)
  Sender: FDA-Public Use
  Company Number: None

PATIENT
  Sex: Male

DRUGS (21)
  1. GEMFIBROZIL [Suspect]
     Indication: BLOOD TRIGLYCERIDES INCREASED
     Dates: start: 2012, end: 2013
  2. MINOXIL [Concomitant]
  3. MERTRIM [Concomitant]
  4. VITAMIN B COMPLEX [Concomitant]
  5. CHLOR TABS [Concomitant]
  6. POTASSIUM [Concomitant]
  7. GLUCONATE [Concomitant]
  8. D3 [Concomitant]
  9. NATURAL REISHI COMPLEX [Concomitant]
  10. ARTERY CLEANSE WITH COQID [Concomitant]
  11. TOASTERALL [Concomitant]
  12. TESTORISE [Concomitant]
  13. HORNY GOAT WEED [Concomitant]
  14. DEHYDROEPIANDROSTERONE [Concomitant]
  15. PROMAXIS RX [Concomitant]
  16. MACA [Concomitant]
  17. ME [Concomitant]
  18. PRILOSEC [Concomitant]
  19. JUVENON [Concomitant]
  20. MEGA-STEEN [Concomitant]
  21. SEANU HAIR [Concomitant]

REACTIONS (3)
  - Erectile dysfunction [None]
  - Urinary retention [None]
  - Anger [None]
